FAERS Safety Report 17733857 (Version 1)
Quarter: 2020Q2

REPORT INFORMATION
  Report Type: Spontaneous
  Country: US (occurrence: US)
  Receive Date: 20200501
  Receipt Date: 20200501
  Transmission Date: 20200714
  Serious: Yes (Other)
  Sender: FDA-Public Use
  Company Number: US-EISAI MEDICAL RESEARCH-EC-2020-073929

PATIENT
  Age: 40 Year
  Sex: Female
  Weight: 103 kg

DRUGS (13)
  1. EPIDIOLEX [Suspect]
     Active Substance: CANNABIDIOL
     Indication: EPILEPSY
     Dosage: DOSAGE AND FREQUENCY UNKNOWN
     Dates: start: 20181221, end: 201907
  2. DEPO-PROVERA [Concomitant]
     Active Substance: MEDROXYPROGESTERONE ACETATE
     Indication: CONTRACEPTION
     Dosage: DOSAGE AND FREQUENCY UNKNOWN
  3. LAMICTAL [Concomitant]
     Active Substance: LAMOTRIGINE
     Indication: EPILEPSY
     Dates: start: 20161014
  4. ZONEGRAN [Concomitant]
     Active Substance: ZONISAMIDE
     Indication: EPILEPSY
     Route: 048
     Dates: start: 20190821
  5. POTASSIUM CHLORIDE. [Concomitant]
     Active Substance: POTASSIUM CHLORIDE
     Indication: SUPPLEMENTATION THERAPY
     Dosage: DOSAGE AND FREQUENCY UNKNOWN
  6. LEVOCARNITINE. [Concomitant]
     Active Substance: LEVOCARNITINE
     Indication: SUPPLEMENTATION THERAPY
     Dates: start: 20200224
  7. ONFI [Suspect]
     Active Substance: CLOBAZAM
     Indication: EPILEPSY
     Dosage: DOSAGE AND FREQUENCY UNKNOWN
     Dates: start: 20150107, end: 2019
  8. ONFI [Suspect]
     Active Substance: CLOBAZAM
     Dosage: DOSE CHANGED (UNSPECIFIED); DOSAGE BEING TAPERED FOR A PLANNED DISCONTINUATION
     Dates: start: 2019
  9. VALPROIC ACID. [Concomitant]
     Active Substance: VALPROIC ACID
     Indication: PRODUCT USED FOR UNKNOWN INDICATION
     Dosage: DOSAGE AND FREQUENCY UNKNOWN
     Dates: start: 202002
  10. FYCOMPA [Suspect]
     Active Substance: PERAMPANEL
     Indication: PRODUCT USED FOR UNKNOWN INDICATION
     Dosage: DOSAGE AND FREQUENCY UNKNOWN
     Route: 048
     Dates: end: 2019
  11. FYCOMPA [Suspect]
     Active Substance: PERAMPANEL
     Dosage: DECREASED DOSE; FREQUENCY UNKNOWN
     Dates: start: 2019, end: 201911
  12. DEPAKOTE ER [Concomitant]
     Active Substance: DIVALPROEX SODIUM
     Indication: EPILEPSY
     Dosage: DOSAGE AND FREQUENCY UNKNOWN
     Dates: start: 20200107
  13. SIMVASTATIN. [Concomitant]
     Active Substance: SIMVASTATIN
     Indication: BLOOD CHOLESTEROL
     Dosage: DOSAGE AND FREQUENCY UNKNOWN

REACTIONS (4)
  - Hallucinations, mixed [Unknown]
  - Emotional disorder [Unknown]
  - Cognitive disorder [Unknown]
  - Psychotic disorder [Unknown]

NARRATIVE: CASE EVENT DATE: 2019
